FAERS Safety Report 14763454 (Version 5)
Quarter: 2018Q4

REPORT INFORMATION
  Report Type: Spontaneous
  Country: FI (occurrence: FI)
  Receive Date: 20180416
  Receipt Date: 20181112
  Transmission Date: 20190204
  Serious: Yes (Other)
  Sender: FDA-Public Use
  Company Number: FI-009507513-1804FIN004164

PATIENT
  Age: 45 Year
  Sex: Male

DRUGS (18)
  1. LITHIUM. [Interacting]
     Active Substance: LITHIUM
     Dosage: 900 MG, TOTAL
     Route: 065
     Dates: start: 20161024, end: 201705
  2. LITHIUM. [Interacting]
     Active Substance: LITHIUM
     Dosage: 900 MG, UNK
     Route: 065
     Dates: start: 20170324
  3. ABILIFY [Interacting]
     Active Substance: ARIPIPRAZOLE
     Indication: BIPOLAR DISORDER
     Dosage: 30 MG, TOTAL
     Route: 048
     Dates: start: 20150302, end: 20161010
  4. ABILIFY [Interacting]
     Active Substance: ARIPIPRAZOLE
     Dosage: 10 MG, TOTAL
     Route: 048
     Dates: start: 20161104, end: 20170307
  5. OLANZAPINE. [Concomitant]
     Active Substance: OLANZAPINE
     Dosage: 5 MG, UNK
     Route: 065
     Dates: start: 20160324
  6. LITHIUM. [Interacting]
     Active Substance: LITHIUM
     Indication: BIPOLAR DISORDER
     Dosage: 300 MG, QD
     Route: 065
     Dates: start: 20161017, end: 20161018
  7. TAMSULOSIN HYDROCHLORIDE. [Concomitant]
     Active Substance: TAMSULOSIN HYDROCHLORIDE
     Indication: PRODUCT USED FOR UNKNOWN INDICATION
     Dosage: UNK
     Route: 065
  8. LITHIUM. [Interacting]
     Active Substance: LITHIUM
     Dosage: 600 MG, UNK
     Route: 065
     Dates: start: 20161018, end: 20161024
  9. ABILIFY [Interacting]
     Active Substance: ARIPIPRAZOLE
     Dosage: 20 MG, TOTAL
     Route: 048
     Dates: start: 20170324
  10. OLANZAPINE. [Concomitant]
     Active Substance: OLANZAPINE
     Indication: PRODUCT USED FOR UNKNOWN INDICATION
     Dosage: 10 MG, TOTAL
     Route: 065
  11. LAMOTRIGINE. [Concomitant]
     Active Substance: LAMOTRIGINE
     Indication: PRODUCT USED FOR UNKNOWN INDICATION
     Dosage: UNK
     Route: 065
  12. ABILIFY [Interacting]
     Active Substance: ARIPIPRAZOLE
     Dosage: 15 MG, TOTAL
     Route: 048
     Dates: start: 20170307, end: 20170324
  13. LITHIUM. [Interacting]
     Active Substance: LITHIUM
     Dosage: 1200 MG, TOTAL
     Route: 065
     Dates: start: 201705
  14. QUETIAPINE FUMARATE. [Concomitant]
     Active Substance: QUETIAPINE FUMARATE
     Indication: PRODUCT USED FOR UNKNOWN INDICATION
     Dosage: UNK
     Route: 065
  15. MOMETASONE FUROATE. [Suspect]
     Active Substance: MOMETASONE FUROATE
     Indication: PRODUCT USED FOR UNKNOWN INDICATION
     Dosage: UNK
     Route: 065
  16. ABILIFY [Interacting]
     Active Substance: ARIPIPRAZOLE
     Dosage: 20 MG, TOTAL
     Route: 048
     Dates: start: 20161010, end: 20161102
  17. ABILIFY [Interacting]
     Active Substance: ARIPIPRAZOLE
     Dosage: 15 MG, TOTAL
     Route: 048
     Dates: start: 20161102, end: 20161104
  18. LEVOMEPROMAZINE [Concomitant]
     Active Substance: LEVOMEPROMAZINE
     Indication: PRODUCT USED FOR UNKNOWN INDICATION
     Dosage: UNK
     Route: 065

REACTIONS (15)
  - Weight increased [Unknown]
  - Gait disturbance [Unknown]
  - Diarrhoea [Unknown]
  - Paranoia [Unknown]
  - Limb discomfort [Unknown]
  - Restless legs syndrome [Unknown]
  - Clumsiness [Unknown]
  - Ataxia [Recovered/Resolved with Sequelae]
  - Tremor [Unknown]
  - Drug interaction [Unknown]
  - Dizziness [Unknown]
  - Depression [Unknown]
  - Fatigue [Unknown]
  - Musculoskeletal stiffness [Unknown]
  - Balance disorder [Unknown]

NARRATIVE: CASE EVENT DATE: 201602
